FAERS Safety Report 16691052 (Version 2)
Quarter: 2019Q3

REPORT INFORMATION
  Report Type: Report from Study
  Country: None (occurrence: BR)
  Receive Date: 20190812
  Receipt Date: 20190917
  Transmission Date: 20191004
  Serious: Yes (Hospitalization)
  Sender: FDA-Public Use
  Company Number: BR-ABBVIE-19K-020-2883415-00

PATIENT
  Sex: Male
  Weight: 78 kg

DRUGS (4)
  1. ENTYVIO [Concomitant]
     Active Substance: VEDOLIZUMAB
     Indication: PRODUCT USED FOR UNKNOWN INDICATION
  2. HUMIRA [Suspect]
     Active Substance: ADALIMUMAB
     Indication: CROHN^S DISEASE
     Dosage: LOADING DOSE - WEEK 0
     Route: 058
     Dates: start: 20160318, end: 20160318
  3. HUMIRA [Suspect]
     Active Substance: ADALIMUMAB
     Dosage: LOADING DOSE - WEEK 2
     Route: 058
     Dates: start: 2016, end: 2016
  4. HUMIRA [Suspect]
     Active Substance: ADALIMUMAB
     Route: 058
     Dates: end: 201907

REACTIONS (4)
  - Crohn^s disease [Recovered/Resolved]
  - Small intestinal obstruction [Recovered/Resolved]
  - Injection site pain [Recovered/Resolved]
  - Therapeutic product effect incomplete [Unknown]

NARRATIVE: CASE EVENT DATE: 2019
